FAERS Safety Report 12819057 (Version 2)
Quarter: 2016Q4

REPORT INFORMATION
  Report Type: Spontaneous
  Country: US (occurrence: US)
  Receive Date: 20161006
  Receipt Date: 20161107
  Transmission Date: 20170207
  Serious: No
  Sender: FDA-Public Use
  Company Number: US-GLAXOSMITHKLINE-US2016145725

PATIENT
  Sex: Female

DRUGS (2)
  1. NUCALA [Suspect]
     Active Substance: MEPOLIZUMAB
     Dosage: UNK
     Route: 042
     Dates: start: 20160804, end: 20160921
  2. NUCALA [Suspect]
     Active Substance: MEPOLIZUMAB
     Indication: ASTHMA
     Dosage: UNK
     Route: 042
     Dates: start: 20160804, end: 20160921

REACTIONS (1)
  - Rash pruritic [Unknown]
